FAERS Safety Report 4525873-3 (Version None)
Quarter: 2004Q4

REPORT INFORMATION
  Report Type: 
  Country: None (occurrence: None)
  Receive Date: 20041124
  Receipt Date: 20040126
  Transmission Date: 20050328
  Serious: Yes (Other)
  Sender: FDA-Public Use
  Company Number: 2004004026

PATIENT
  Age: 64 Year
  Sex: Male
  Weight: 96.6162 kg

DRUGS (3)
  1. TIKOSYN [Suspect]
     Indication: ATRIAL FIBRILLATION
     Dosage: 1000 MCG (BID), ORAL
     Route: 048
     Dates: start: 20040105
  2. WARFARIN SODIUM [Concomitant]
  3. MULTIVITAMIN [Concomitant]

REACTIONS (5)
  - ATRIAL FIBRILLATION [None]
  - HYPERHIDROSIS [None]
  - PALPITATIONS [None]
  - UNEVALUABLE EVENT [None]
  - VISION BLURRED [None]
